FAERS Safety Report 11110448 (Version 1)
Quarter: 2015Q2

REPORT INFORMATION
  Report Type: Spontaneous
  Country: US (occurrence: None)
  Receive Date: 20150512
  Receipt Date: 20150512
  Transmission Date: 20150821
  Serious: No
  Sender: FDA-Public Use
  Company Number: None

PATIENT
  Age: 29 Year
  Sex: Female
  Weight: 150 kg

DRUGS (5)
  1. MULTI VITAMIN [Concomitant]
     Active Substance: VITAMINS
  2. IRON [Concomitant]
     Active Substance: IRON
  3. XULANE [Concomitant]
     Active Substance: ETHINYL ESTRADIOL\NORELGESTROMIN
  4. XULANE [Suspect]
     Active Substance: ETHINYL ESTRADIOL\NORELGESTROMIN
     Indication: PRODUCT USED FOR UNKNOWN INDICATION
     Dosage: WEEKLY PATCH, WEEKLY, APPLIED TO A SURFACE, USUALLY THE SKIN
     Route: 061
  5. STOOL SOFTENER [Concomitant]
     Active Substance: DOCUSATE CALCIUM

REACTIONS (8)
  - Product substitution issue [None]
  - Product adhesion issue [None]
  - Acne [None]
  - Weight increased [None]
  - Metrorrhagia [None]
  - Mood swings [None]
  - Menstrual disorder [None]
  - Wrong technique in drug usage process [None]
